FAERS Safety Report 4511227-2 (Version None)
Quarter: 2004Q4

REPORT INFORMATION
  Report Type: 
  Country: None (occurrence: None)
  Receive Date: 20041129
  Receipt Date: 20041117
  Transmission Date: 20050328
  Serious: Yes (Hospitalization)
  Sender: FDA-Public Use
  Company Number: GB-JNJFOC-20041104427

PATIENT
  Age: 62 Year
  Sex: Female
  Weight: 75 kg

DRUGS (5)
  1. REMICADE [Suspect]
     Indication: RHEUMATOID ARTHRITIS
     Route: 042
  2. METHOTREXATE [Concomitant]
     Indication: RHEUMATOID ARTHRITIS
     Route: 049
  3. FOSAMAX [Concomitant]
     Indication: OSTEOPOROSIS
     Route: 049
  4. AMLODIPINE [Concomitant]
     Indication: HYPERTENSION
     Route: 049
  5. CANDESARTAN [Concomitant]
     Route: 049

REACTIONS (1)
  - LUNG NEOPLASM MALIGNANT [None]
